FAERS Safety Report 7941223-4 (Version None)
Quarter: 2011Q4

REPORT INFORMATION
  Report Type: 
  Country: None (occurrence: None)
  Receive Date: 20111108
  Receipt Date: 20110503
  Transmission Date: 20120403
  Serious: Yes (Other)
  Sender: FDA-Public Use
  Company Number: PHEH2011US00484

PATIENT
  Sex: Female

DRUGS (1)
  1. ZOMETA [Suspect]

REACTIONS (7)
  - OSTEONECROSIS OF JAW [None]
  - DEFORMITY [None]
  - PAIN [None]
  - PHYSICAL DISABILITY [None]
  - INFECTION [None]
  - INJURY [None]
  - ANXIETY [None]
